FAERS Safety Report 13259830 (Version 1)
Quarter: 2017Q1

REPORT INFORMATION
  Report Type: Spontaneous
  Country: JP (occurrence: JP)
  Receive Date: 20170222
  Receipt Date: 20170222
  Transmission Date: 20170428
  Serious: Yes (Other)
  Sender: FDA-Public Use
  Company Number: JP-PFIZER INC-2017074739

PATIENT

DRUGS (2)
  1. PAXIL [Suspect]
     Active Substance: PAROXETINE HYDROCHLORIDE
     Dosage: UNK
     Route: 048
  2. SOLANAX [Suspect]
     Active Substance: ALPRAZOLAM
     Dosage: 0.4 MG, 3X/DAY
     Route: 048

REACTIONS (1)
  - Schizophrenia [Unknown]
